FAERS Safety Report 7009901-1 (Version None)
Quarter: 2010Q3

REPORT INFORMATION
  Report Type: 
  Country: None (occurrence: None)
  Receive Date: 20100923
  Receipt Date: 20100915
  Transmission Date: 20110219
  Serious: Yes (Hospitalization)
  Sender: FDA-Public Use
  Company Number: PHHO2010JP13668

PATIENT
  Sex: Male
  Weight: 64 kg

DRUGS (6)
  1. STI571/CGP57148B T35717+TAB [Suspect]
     Indication: CHRONIC MYELOID LEUKAEMIA
     Dosage: UNK
     Route: 048
     Dates: start: 20071213
  2. MYSER [Concomitant]
     Indication: SKIN INFECTION
     Dosage: UNK
     Dates: start: 20100527
  3. PETROLATUM SALICYLICUM [Concomitant]
     Indication: SKIN INFECTION
     Dosage: UNK
     Dates: start: 20100715
  4. RASENAZOLIN [Concomitant]
  5. PANSPORIN [Concomitant]
  6. GENTAMICIN [Concomitant]

REACTIONS (6)
  - CELLULITIS [None]
  - ERYTHEMA [None]
  - PAIN IN EXTREMITY [None]
  - PALMAR-PLANTAR ERYTHRODYSAESTHESIA SYNDROME [None]
  - SKIN FISSURES [None]
  - SWELLING [None]
